FAERS Safety Report 6646116-0 (Version None)
Quarter: 2010Q1

REPORT INFORMATION
  Report Type: 
  Country: None (occurrence: None)
  Receive Date: 20100323
  Receipt Date: 20100311
  Transmission Date: 20100710
  Serious: Yes (Other)
  Sender: FDA-Public Use
  Company Number: US-PFIZER INC-2007010500

PATIENT
  Sex: Female
  Weight: 81.633 kg

DRUGS (6)
  1. AROMASIN [Suspect]
     Indication: BREAST CANCER
     Dosage: 25 MG, 1X/DAY
     Route: 048
     Dates: start: 20060101, end: 20070731
  2. AROMASIN [Suspect]
     Dosage: 25 MG, 1X/DAY
     Route: 048
  3. CALCIUM [Suspect]
  4. ATENOLOL [Concomitant]
     Indication: ATRIAL FIBRILLATION
     Dosage: UNK
  5. LANOXIN [Concomitant]
     Indication: ATRIAL FIBRILLATION
     Dosage: UNK
  6. WARFARIN SODIUM [Concomitant]
     Indication: ATRIAL FIBRILLATION
     Dosage: UNK

REACTIONS (3)
  - ARTHRITIS [None]
  - JOINT CREPITATION [None]
  - MYALGIA [None]
